FAERS Safety Report 7714544-8 (Version None)
Quarter: 2011Q3

REPORT INFORMATION
  Report Type: 
  Country: None (occurrence: None)
  Receive Date: 20110829
  Receipt Date: 20110818
  Transmission Date: 20111222
  Serious: Yes (Hospitalization)
  Sender: FDA-Public Use
  Company Number: US-JNJFOC-20101202932

PATIENT
  Sex: Male
  Weight: 54.6 kg

DRUGS (9)
  1. REMICADE [Suspect]
     Indication: CROHN'S DISEASE
     Route: 042
     Dates: start: 20100713
  2. REMICADE [Suspect]
     Route: 042
     Dates: start: 20101014
  3. MULTIPLE VITAMIN [Concomitant]
  4. ANTIBIOTICS [Concomitant]
     Indication: INFLAMMATORY BOWEL DISEASE
  5. FERROUS SULFATE TAB [Concomitant]
  6. MESALAMINE [Concomitant]
     Route: 048
  7. REMICADE [Suspect]
     Route: 042
     Dates: start: 20101101
  8. NEXIUM [Concomitant]
  9. PREDNISONE [Concomitant]

REACTIONS (1)
  - CROHN'S DISEASE [None]
